FAERS Safety Report 6767122-1 (Version None)
Quarter: 2010Q2

REPORT INFORMATION
  Report Type: 
  Country: None (occurrence: None)
  Receive Date: 20100614
  Receipt Date: 20100420
  Transmission Date: 20101027
  Serious: Yes (Hospitalization, Other)
  Sender: FDA-Public Use
  Company Number: US-BAYER-200938785NA

PATIENT
  Age: 26 Year
  Sex: Female
  Weight: 87 kg

DRUGS (5)
  1. YAZ [Suspect]
     Indication: ORAL CONTRACEPTION
     Route: 048
     Dates: start: 20080218, end: 20080518
  2. SULFAMETHOXAZOLE [Concomitant]
     Dates: start: 20081124
  3. ADVIL LIQUI-GELS [Concomitant]
     Dates: start: 20070201
  4. PEPCID [Concomitant]
     Dosage: TOTAL DAILY DOSE: 40 MG  UNIT DOSE: 20 MG
     Route: 048
     Dates: start: 20080701
  5. AMPICILLIN [Concomitant]
     Route: 042
     Dates: start: 20080701

REACTIONS (10)
  - ABDOMINAL PAIN [None]
  - ABDOMINAL PAIN UPPER [None]
  - ASCITES [None]
  - BILIARY COLIC [None]
  - CHOLECYSTITIS ACUTE [None]
  - CHOLELITHIASIS [None]
  - GALLBLADDER ENLARGEMENT [None]
  - HELICOBACTER INFECTION [None]
  - NAUSEA [None]
  - VOMITING [None]
